FAERS Safety Report 7416993-4 (Version None)
Quarter: 2011Q2

REPORT INFORMATION
  Report Type: 
  Country: None (occurrence: None)
  Receive Date: 20110415
  Receipt Date: 20110401
  Transmission Date: 20111010
  Serious: Yes (Other)
  Sender: FDA-Public Use
  Company Number: FR-CELGENEUS-056-C5013-10120041

PATIENT
  Sex: Male
  Weight: 67 kg

DRUGS (2)
  1. LENALIDOMIDE [Suspect]
     Dosage: 2.5 MILLIGRAM
     Route: 048
     Dates: start: 20101027, end: 20101124
  2. LENALIDOMIDE [Suspect]
     Indication: MANTLE CELL LYMPHOMA
     Dosage: 5 MILLIGRAM
     Route: 048
     Dates: start: 20100707, end: 20100101

REACTIONS (2)
  - SQUAMOUS CELL CARCINOMA [None]
  - MALIGNANT MELANOMA [None]
